FAERS Safety Report 12677738 (Version 1)
Quarter: 2016Q3

REPORT INFORMATION
  Report Type: Spontaneous
  Country: ES (occurrence: ES)
  Receive Date: 20160823
  Receipt Date: 20160823
  Transmission Date: 20161109
  Serious: Yes (Other)
  Sender: FDA-Public Use
  Company Number: ES-UNICHEM LABORATORIES LIMITED-UCM201608-000188

PATIENT
  Age: 37 Year
  Sex: Female

DRUGS (12)
  1. LAMOTRIGINE. [Suspect]
     Active Substance: LAMOTRIGINE
     Dates: start: 201312, end: 201405
  2. ASENAPINE [Concomitant]
     Active Substance: ASENAPINE
     Indication: MANIA
     Dates: start: 201208, end: 201212
  3. QUETIAPINE. [Concomitant]
     Active Substance: QUETIAPINE
     Dates: start: 201306, end: 201312
  4. SODIUM VALPROATE [Concomitant]
     Active Substance: VALPROATE SODIUM
     Indication: BIPOLAR DISORDER
  5. QUETIAPINE. [Concomitant]
     Active Substance: QUETIAPINE
     Indication: MANIA
     Dates: start: 201208
  6. SODIUM VALPROATE [Concomitant]
     Active Substance: VALPROATE SODIUM
     Indication: MANIA
     Dates: start: 201312
  7. LAMOTRIGINE. [Suspect]
     Active Substance: LAMOTRIGINE
     Indication: MANIA
     Dates: start: 201207
  8. LAMOTRIGINE. [Suspect]
     Active Substance: LAMOTRIGINE
     Indication: BIPOLAR DISORDER
  9. ASENAPINE [Concomitant]
     Active Substance: ASENAPINE
     Indication: BIPOLAR DISORDER
     Dates: start: 201302
  10. LORMETAZEPAM [Concomitant]
     Active Substance: LORMETAZEPAM
     Indication: MANIA
     Dates: start: 201206
  11. LORMETAZEPAM [Concomitant]
     Active Substance: LORMETAZEPAM
     Indication: BIPOLAR DISORDER
  12. QUETIAPINE. [Concomitant]
     Active Substance: QUETIAPINE
     Indication: BIPOLAR DISORDER
     Dates: start: 201212

REACTIONS (1)
  - Cataplexy [Recovered/Resolved]
